FAERS Safety Report 7328564-9 (Version None)
Quarter: 2011Q1

REPORT INFORMATION
  Report Type: 
  Country: None (occurrence: None)
  Receive Date: 20110303
  Receipt Date: 20091122
  Transmission Date: 20110831
  Serious: Yes (Death, Other)
  Sender: FDA-Public Use
  Company Number: US-BAYER-200940514NA

PATIENT
  Sex: Female
  Weight: 70.295 kg

DRUGS (21)
  1. RED BLOOD CELLS [Concomitant]
     Dosage: 2 U, UNK
     Route: 042
     Dates: start: 20071031
  2. ACETYLSALICYLIC ACID (} 100 MG, FAST RELEASE) [Concomitant]
  3. HEPARIN [Concomitant]
     Dosage: UNK
     Route: 042
     Dates: start: 20071031
  4. NOREPINEPHRINE BITARTRATE [Concomitant]
     Dosage: UNK
     Route: 042
     Dates: start: 20071031
  5. SODIUM BICARBONATE [Concomitant]
     Dosage: UNK
     Route: 042
     Dates: start: 20071031
  6. NITROGLYCERIN [Concomitant]
     Dosage: UNK
     Route: 042
     Dates: start: 20071031
  7. APROTININ [Concomitant]
     Dosage: UNK
     Route: 042
     Dates: start: 20071031
  8. AVAPRO [Concomitant]
     Dosage: 300 MG, UNK
  9. VASOPRESSIN [Concomitant]
     Dosage: UNK
     Route: 042
     Dates: start: 20071031
  10. SUFENTANIL CITRATE [Concomitant]
     Dosage: UNK
     Route: 042
     Dates: start: 20071031
  11. VANCOMYCIN [Concomitant]
     Dosage: 1 G, UNK
     Dates: start: 20071031
  12. EPINEPHRINE [Concomitant]
     Dosage: UNK
     Route: 042
     Dates: start: 20071031
  13. CALCIUM CHLORIDE [Concomitant]
     Dosage: UNK
     Route: 042
     Dates: start: 20071031
  14. RED BLOOD CELLS [Concomitant]
     Dosage: 1344 ML, UNK
     Route: 042
     Dates: start: 20071031
  15. TRASYLOL [Suspect]
     Indication: INTRA-AORTIC BALLOON PLACEMENT
  16. ALBUTEROL [Concomitant]
     Dosage: 2 PUFF(S), PRN
  17. PROTAMINE SULFATE [Concomitant]
     Dosage: UNK
     Route: 042
     Dates: start: 20071031
  18. DOBUTREX [Concomitant]
     Dosage: UNK
     Route: 042
     Dates: start: 20071031
  19. TRASYLOL [Suspect]
     Indication: CORONARY ARTERY BYPASS
     Dosage: 200 ML, UNK
     Route: 042
     Dates: start: 20071031, end: 20071031
  20. ALBUMIN (HUMAN) [Concomitant]
     Dosage: 4 U, UNK
     Route: 042
     Dates: start: 20071031
  21. LISINOPRIL [Concomitant]

REACTIONS (16)
  - RENAL FAILURE CHRONIC [None]
  - ANXIETY [None]
  - FEAR [None]
  - STRESS [None]
  - RENAL FAILURE [None]
  - CARDIOGENIC SHOCK [None]
  - PAIN [None]
  - RENAL IMPAIRMENT [None]
  - CARDIAC ARREST [None]
  - ANHEDONIA [None]
  - INJURY [None]
  - DEATH [None]
  - RENAL INJURY [None]
  - MULTI-ORGAN FAILURE [None]
  - EMOTIONAL DISTRESS [None]
  - UNEVALUABLE EVENT [None]
